FAERS Safety Report 10190248 (Version 1)
Quarter: 2014Q2

REPORT INFORMATION
  Report Type: Spontaneous
  Country: GB (occurrence: GB)
  Receive Date: 20140522
  Receipt Date: 20140522
  Transmission Date: 20141212
  Serious: Yes (Hospitalization)
  Sender: FDA-Public Use
  Company Number: GB-WATSON-2014-10356

PATIENT
  Age: 83 Year
  Sex: Female

DRUGS (6)
  1. CITALOPRAM (UNKNOWN) [Suspect]
     Indication: DEPRESSED MOOD
     Dosage: 20 MG, DAILY
     Route: 048
     Dates: start: 20110804, end: 20140429
  2. MIDODRINE [Suspect]
     Indication: ORTHOSTATIC HYPOTENSION
     Dosage: 5 MG, QID
     Route: 048
     Dates: start: 20120718, end: 20140429
  3. CO-BENELDOPA [Concomitant]
     Indication: PRODUCT USED FOR UNKNOWN INDICATION
     Dosage: UNK
     Route: 065
  4. DIAZEPAM [Concomitant]
     Indication: PRODUCT USED FOR UNKNOWN INDICATION
     Dosage: UNK
     Route: 065
  5. PARACETAMOL [Concomitant]
     Indication: PRODUCT USED FOR UNKNOWN INDICATION
     Dosage: UNK
     Route: 065
  6. SODIUM VALPROATE [Concomitant]
     Indication: PRODUCT USED FOR UNKNOWN INDICATION
     Dosage: UNK
     Route: 065

REACTIONS (1)
  - Serotonin syndrome [Recovering/Resolving]
